FAERS Safety Report 10348489 (Version 1)
Quarter: 2014Q3

REPORT INFORMATION
  Report Type: Report from Study
  Country: US (occurrence: US)
  Receive Date: 20140729
  Receipt Date: 20140729
  Transmission Date: 20150326
  Serious: No
  Sender: FDA-Public Use
  Company Number: US-ABBVIE-13P-163-1122044-00

PATIENT
  Age: 50 Year
  Sex: Male

DRUGS (4)
  1. NIASPAN [Suspect]
     Active Substance: NIACIN
     Indication: PRODUCT USED FOR UNKNOWN INDICATION
     Route: 048
     Dates: start: 201301
  2. NIASPAN [Suspect]
     Active Substance: NIACIN
     Dosage: 1000 MG AT BEDTIME
     Route: 048
     Dates: start: 20130520
  3. ASPIRIN. [Concomitant]
     Active Substance: ASPIRIN
     Indication: PRODUCT USED FOR UNKNOWN INDICATION
     Dosage: 4 TABS 1 HOUR PRIOR TO DOSE OF NIASPAN
     Route: 048
  4. NIASPAN [Suspect]
     Active Substance: NIACIN
     Dosage: 500 MG 3 AT BEDTIME
     Route: 048
     Dates: start: 20130620

REACTIONS (4)
  - Skin burning sensation [Not Recovered/Not Resolved]
  - Malaise [Not Recovered/Not Resolved]
  - Rash [Not Recovered/Not Resolved]
  - Pruritus [Not Recovered/Not Resolved]

NARRATIVE: CASE EVENT DATE: 20130703
